FAERS Safety Report 7425832-7 (Version None)
Quarter: 2011Q2

REPORT INFORMATION
  Report Type: 
  Country: None (occurrence: None)
  Receive Date: 20110420
  Receipt Date: 20110406
  Transmission Date: 20111010
  Serious: Yes (Other)
  Sender: FDA-Public Use
  Company Number: US-RB-024409-11

PATIENT
  Age: 4 Year
  Sex: Male

DRUGS (1)
  1. DELSYM CHILDREN'S NIGHTTIME GRAPE [Suspect]
     Dosage: GRANDMOTHER GAVE HER GRANDSON 20ML ON 06-APR-2011.
     Route: 048

REACTIONS (2)
  - OVERDOSE [None]
  - LOSS OF CONSCIOUSNESS [None]
